FAERS Safety Report 8506082-X (Version None)
Quarter: 2012Q3

REPORT INFORMATION
  Report Type: 
  Country: None (occurrence: None)
  Receive Date: 20120712
  Receipt Date: 20120629
  Transmission Date: 20120928
  Serious: Yes (Hospitalization, Other)
  Sender: FDA-Public Use
  Company Number: ES-ROCHE-1066988

PATIENT
  Sex: Female
  Weight: 61 kg

DRUGS (15)
  1. INSULIN [Concomitant]
     Dosage: REPORTED AS INSULIN PROCONG
  2. BROMAZEPAM [Concomitant]
  3. BLINDED PERTUZUMAB [Suspect]
     Dosage: MAINTANANCE DOSE, LAST DOSE PRIOR TO SAE:11/JUN/2012
  4. ACETAMINOPHEN [Concomitant]
  5. VENLAFAXINE [Concomitant]
  6. HERCEPTIN [Suspect]
     Dosage: MAINTANANCE DOSE, LAST DOSE PRIOR TO SAE:11/JUN/2012
  7. DOCETAXEL [Suspect]
     Indication: BREAST CANCER
     Dosage: LAST DOSE PRIOR TO SAE:11/JUN/2012
     Route: 042
     Dates: start: 20120430
  8. BLINDED PERTUZUMAB [Suspect]
     Indication: BREAST CANCER
     Dosage: LOADING DOSE
     Route: 042
     Dates: start: 20120430
  9. HERCEPTIN [Suspect]
     Indication: BREAST CANCER
     Dosage: LOADING DOSE
     Route: 042
     Dates: start: 20120430
  10. ENALAPRIL MALEATE [Concomitant]
  11. OMEPRAZOLE [Concomitant]
  12. GLICLAZIDE [Concomitant]
  13. GEMFIBROZIL [Concomitant]
  14. METFORMIN HCL [Concomitant]
  15. ATORVASTAN [Concomitant]

REACTIONS (3)
  - DIARRHOEA [None]
  - FEBRILE NEUTROPENIA [None]
  - MUCOSAL INFLAMMATION [None]
